FAERS Safety Report 18248558 (Version 1)
Quarter: 2020Q3

REPORT INFORMATION
  Report Type: Report from Study
  Country: MX (occurrence: MX)
  Receive Date: 20200909
  Receipt Date: 20200909
  Transmission Date: 20201103
  Serious: Yes (Other)
  Sender: FDA-Public Use
  Company Number: MX-JNJFOC-20200844154

PATIENT
  Age: 52 Year
  Sex: Female
  Weight: 86 kg

DRUGS (3)
  1. SIMPONI [Suspect]
     Active Substance: GOLIMUMAB
     Indication: RHEUMATOID ARTHRITIS
     Route: 058
     Dates: start: 20180317
  2. METHOTREXATE. [Concomitant]
     Active Substance: METHOTREXATE
     Route: 065
  3. ETORICOXIB. [Concomitant]
     Active Substance: ETORICOXIB
     Indication: INFLAMMATORY PAIN
     Route: 065

REACTIONS (3)
  - COVID-19 [Unknown]
  - Urinary tract infection [Recovered/Resolved]
  - Headache [Unknown]

NARRATIVE: CASE EVENT DATE: 202007
